FAERS Safety Report 16842419 (Version 1)
Quarter: 2019Q3

REPORT INFORMATION
  Report Type: Spontaneous
  Country: US (occurrence: US)
  Receive Date: 20190924
  Receipt Date: 20190924
  Transmission Date: 20191005
  Serious: Yes (Hospitalization, Other)
  Sender: FDA-Public Use
  Company Number: US-ABBVIE-19P-163-2926506-00

PATIENT
  Age: 36 Year
  Sex: Male

DRUGS (8)
  1. CLOZAPINE. [Suspect]
     Active Substance: CLOZAPINE
     Indication: AUDITORY DISORDER
     Dosage: NIGHTLY
     Route: 065
  2. VALPROIC ACID. [Suspect]
     Active Substance: VALPROIC ACID
     Indication: SCHIZOAFFECTIVE DISORDER
     Route: 065
  3. LITHIUM. [Suspect]
     Active Substance: LITHIUM
     Indication: SCHIZOAFFECTIVE DISORDER
     Route: 065
  4. CLOZAPINE. [Suspect]
     Active Substance: CLOZAPINE
     Indication: AFFECTIVE DISORDER
  5. ARIPIPRAZOLE. [Suspect]
     Active Substance: ARIPIPRAZOLE
     Indication: SCHIZOAFFECTIVE DISORDER
     Route: 065
  6. OLANZAPINE. [Suspect]
     Active Substance: OLANZAPINE
     Indication: PRODUCT USED FOR UNKNOWN INDICATION
     Dosage: 10 MG WITHIN 24
     Route: 030
  7. VALPROIC ACID. [Suspect]
     Active Substance: VALPROIC ACID
     Route: 065
  8. CLOZAPINE. [Suspect]
     Active Substance: CLOZAPINE
     Indication: HALLUCINATION, AUDITORY
     Dosage: NIGHTLY
     Route: 065

REACTIONS (10)
  - Affect lability [Unknown]
  - Drug ineffective [Unknown]
  - Pyrexia [Unknown]
  - Confusional state [Unknown]
  - Neuroleptic malignant syndrome [Recovering/Resolving]
  - Suicide attempt [Unknown]
  - Mental status changes [Unknown]
  - Treatment noncompliance [Unknown]
  - Urinary incontinence [Unknown]
  - Autonomic nervous system imbalance [Unknown]
